FAERS Safety Report 11229974 (Version 4)
Quarter: 2015Q3

REPORT INFORMATION
  Report Type: Spontaneous
  Country: PT (occurrence: PT)
  Receive Date: 20150701
  Receipt Date: 20150707
  Transmission Date: 20151125
  Serious: Yes (Death, Other)
  Sender: FDA-Public Use
  Company Number: PT-ROCHE-1599981

PATIENT
  Age: 28 Year
  Sex: Female

DRUGS (4)
  1. LINEZOLID. [Concomitant]
     Active Substance: LINEZOLID
     Route: 065
     Dates: start: 20141007
  2. MEROPENEM. [Concomitant]
     Active Substance: MEROPENEM
     Route: 065
     Dates: start: 20141007
  3. ZELBORAF [Suspect]
     Active Substance: VEMURAFENIB
     Indication: MALIGNANT MELANOMA STAGE IV
     Dosage: 960 MG BID
     Route: 048
     Dates: start: 20141009, end: 20141121
  4. ZELBORAF [Suspect]
     Active Substance: VEMURAFENIB
     Dosage: 720 MG BID
     Route: 048
     Dates: start: 20141204, end: 20150304

REACTIONS (3)
  - Rash [Recovering/Resolving]
  - Death [Fatal]
  - Rash [Recovering/Resolving]

NARRATIVE: CASE EVENT DATE: 20141105
